FAERS Safety Report 18431316 (Version 1)
Quarter: 2020Q4

REPORT INFORMATION
  Report Type: Spontaneous
  Country: BR (occurrence: BR)
  Receive Date: 20201027
  Receipt Date: 20201027
  Transmission Date: 20210114
  Serious: Yes (Other)
  Sender: FDA-Public Use
  Company Number: BR-NOVOPROD-761462

PATIENT
  Sex: Female
  Weight: 90 kg

DRUGS (3)
  1. FLUOXETINE [Concomitant]
     Active Substance: FLUOXETINE HYDROCHLORIDE
     Indication: PRODUCT USED FOR UNKNOWN INDICATION
     Dosage: 20 MG
     Route: 065
  2. LEVOTHYROXINE SODIQUE [Concomitant]
     Active Substance: LEVOTHYROXINE SODIUM
     Indication: HYPOTHYROIDISM
     Dosage: UNK
     Route: 065
  3. SAXENDA [Suspect]
     Active Substance: LIRAGLUTIDE
     Indication: OVERWEIGHT
     Dosage: MAINTENANCE DOSE 3 MG
     Route: 065
     Dates: start: 2019, end: 202010

REACTIONS (1)
  - Renal mass [Not Recovered/Not Resolved]

NARRATIVE: CASE EVENT DATE: 202010
